FAERS Safety Report 8811681 (Version 1)
Quarter: 2012Q4

REPORT INFORMATION
  Report Type: Spontaneous
  Country: US (occurrence: None)
  Receive Date: 20120925
  Receipt Date: 20120925
  Transmission Date: 20130627
  Serious: Yes (Life-Threatening)
  Sender: FDA-Public Use
  Company Number: None

PATIENT
  Age: 65 Year
  Sex: Male
  Weight: 84.6 kg

DRUGS (5)
  1. GABAPENTIN [Suspect]
     Indication: NEUROPATHY
     Dosage: exp 01/29/2020
     Route: 048
     Dates: start: 20100101, end: 20120725
  2. MOEXIPRIL [Suspect]
     Indication: HYPERTENSION
     Dosage: exp 01/29/2025
     Route: 048
     Dates: start: 20100101, end: 20120725
  3. CRESTOR [Concomitant]
  4. AMLODIPINE [Concomitant]
  5. SIMVASTATIN [Concomitant]

REACTIONS (4)
  - Myoclonus [None]
  - Tremor [None]
  - Asthenia [None]
  - Malaise [None]
